FAERS Safety Report 9695280 (Version 4)
Quarter: 2014Q1

REPORT INFORMATION
  Report Type: Report from Study
  Country: JP (occurrence: JP)
  Receive Date: 20131119
  Receipt Date: 20140130
  Transmission Date: 20141002
  Serious: Yes (Other)
  Sender: FDA-Public Use
  Company Number: JP-JNJFOC-20130716583

PATIENT
  Age: 52 Year
  Sex: Female
  Weight: 42 kg

DRUGS (12)
  1. SIMPONI [Suspect]
     Indication: RHEUMATOID ARTHRITIS
     Route: 058
     Dates: start: 20130509
  2. SIMPONI [Suspect]
     Indication: RHEUMATOID ARTHRITIS
     Route: 058
     Dates: start: 20130411, end: 20130411
  3. SIMPONI [Suspect]
     Indication: RHEUMATOID ARTHRITIS
     Route: 058
     Dates: start: 20130314, end: 20130314
  4. SIMPONI [Suspect]
     Indication: RHEUMATOID ARTHRITIS
     Route: 058
     Dates: start: 20130107, end: 20130107
  5. SIMPONI [Suspect]
     Indication: RHEUMATOID ARTHRITIS
     Route: 058
     Dates: start: 20121203, end: 20121203
  6. SIMPONI [Suspect]
     Indication: RHEUMATOID ARTHRITIS
     Route: 058
     Dates: start: 20121105, end: 20121105
  7. METHOTREXATE [Suspect]
     Indication: RHEUMATOID ARTHRITIS
     Route: 065
     Dates: end: 20121202
  8. METHOTREXATE [Suspect]
     Indication: RHEUMATOID ARTHRITIS
     Route: 065
     Dates: start: 20121203
  9. SALAZOSULFAPYRIDINE [Concomitant]
     Indication: RHEUMATOID ARTHRITIS
     Route: 065
  10. CELECOX [Concomitant]
     Indication: RHEUMATOID ARTHRITIS
     Route: 048
  11. ISCOTIN [Concomitant]
     Indication: PROPHYLAXIS
     Route: 048
  12. FOLIAMIN [Concomitant]
     Indication: PROPHYLAXIS
     Route: 048

REACTIONS (2)
  - Bronchopneumonia [Recovered/Resolved]
  - Lobar pneumonia [Recovered/Resolved]
